FAERS Safety Report 8347198-0 (Version None)
Quarter: 2012Q2

REPORT INFORMATION
  Report Type: 
  Country: None (occurrence: None)
  Receive Date: 20120509
  Receipt Date: 20120504
  Transmission Date: 20120825
  Serious: Yes (Other)
  Sender: FDA-Public Use
  Company Number: GB-EISAI INC-E2090-02108-SOL-GB

PATIENT
  Sex: Male

DRUGS (3)
  1. ZONEGRAN [Suspect]
     Indication: EPILEPSY
     Dosage: 200 MG UP TITRATED TO UNKNOWN DOSE
     Route: 048
  2. ZONEGRAN [Interacting]
     Dosage: DOWN TITRATION TO 200 MG
     Route: 048
  3. CARBAMAZEPINE [Interacting]
     Indication: EPILEPSY
     Dosage: 800 MG TOTAL DAILY DOSE
     Dates: start: 20080101

REACTIONS (2)
  - CONVULSION [None]
  - DRUG INTERACTION [None]
